FAERS Safety Report 9451114 (Version 1)
Quarter: 2013Q3

REPORT INFORMATION
  Report Type: Spontaneous
  Country: PE (occurrence: PE)
  Receive Date: 20130809
  Receipt Date: 20130809
  Transmission Date: 20140515
  Serious: Yes (Other)
  Sender: FDA-Public Use
  Company Number: PE-PFIZER INC-2013229139

PATIENT
  Age: 79 Year
  Sex: Female

DRUGS (3)
  1. NORVASTOR [Suspect]
     Dosage: [AMLODIPINE 5MG] /[ATORVASTATIN 10 MG], DAILY
     Route: 048
     Dates: end: 201306
  2. NORVASC [Suspect]
     Dosage: UNK
     Route: 048
     Dates: end: 201306
  3. ASSA-81 [Suspect]
     Dosage: UNK
     Route: 048
     Dates: end: 201306

REACTIONS (3)
  - Cerebrovascular accident [Recovered/Resolved]
  - Contusion [Recovered/Resolved]
  - Dysphemia [Recovered/Resolved]
